FAERS Safety Report 5968611-X (Version None)
Quarter: 2008Q4

REPORT INFORMATION
  Report Type: 
  Country: None (occurrence: None)
  Receive Date: 20081121
  Receipt Date: 20081121
  Transmission Date: 20090506
  Serious: Yes (Other)
  Sender: FDA-Public Use
  Company Number: None

PATIENT
  Age: 35 Year
  Sex: Female
  Weight: 56.6996 kg

DRUGS (1)
  1. PREDNISONE TAB [Suspect]
     Indication: HEADACHE
     Dosage: 6 DAYS PO
     Route: 048
     Dates: start: 20081022, end: 20081028

REACTIONS (1)
  - ALOPECIA [None]
